FAERS Safety Report 9500173 (Version 2)
Quarter: 2013Q3

REPORT INFORMATION
  Report Type: Spontaneous
  Country: US (occurrence: US)
  Receive Date: 20130905
  Receipt Date: 20130905
  Transmission Date: 20140515
  Serious: Yes (Hospitalization)
  Sender: FDA-Public Use
  Company Number: PHEH2013US012633

PATIENT
  Age: 56 Year
  Sex: Male

DRUGS (2)
  1. CLOZARIL [Suspect]
     Dosage: UNK
  2. LITHIUM [Concomitant]
     Dosage: UNK

REACTIONS (4)
  - Suicidal ideation [Unknown]
  - Psychotic disorder [Unknown]
  - White blood cell count increased [Unknown]
  - Neutrophil count increased [Unknown]
